FAERS Safety Report 23751982 (Version 1)
Quarter: 2024Q2

REPORT INFORMATION
  Report Type: Spontaneous
  Country: US (occurrence: US)
  Receive Date: 20240417
  Receipt Date: 20240417
  Transmission Date: 20240716
  Serious: No
  Sender: FDA-Public Use
  Company Number: US-TEVA-VS-3178692

PATIENT
  Sex: Female

DRUGS (1)
  1. ACETAMINOPHEN\DEXTROAMPHETAMINE [Suspect]
     Active Substance: ACETAMINOPHEN\DEXTROAMPHETAMINE
     Indication: Product used for unknown indication
     Route: 048

REACTIONS (3)
  - Hypertension [Unknown]
  - Anxiety [Unknown]
  - Product substitution issue [Unknown]
